FAERS Safety Report 4546517-0 (Version None)
Quarter: 2005Q1

REPORT INFORMATION
  Report Type: 
  Country: None (occurrence: None)
  Receive Date: 20050106
  Receipt Date: 20040603
  Transmission Date: 20050727
  Serious: Yes (Death)
  Sender: FDA-Public Use
  Company Number: FR-GLAXOSMITHKLINE-B0334598B

PATIENT
  Weight: 4.1 kg

DRUGS (4)
  1. CLAMOXYL [Suspect]
     Dates: start: 20040401, end: 20040401
  2. SYNTOCINON [Concomitant]
     Indication: UTERINE CONTRACTIONS ABNORMAL
     Dates: start: 20040430, end: 20040430
  3. SALBUMOL [Concomitant]
     Dosage: .25MG SINGLE DOSE
     Dates: start: 20040430, end: 20040430
  4. NUBAIN [Concomitant]
     Dosage: 10MG SINGLE DOSE
     Dates: start: 20040430, end: 20040430

REACTIONS (14)
  - ACIDOSIS [None]
  - ANOXIC ENCEPHALOPATHY [None]
  - CIRCULATORY COLLAPSE [None]
  - CLONUS [None]
  - DRUG EXPOSURE DURING PREGNANCY [None]
  - FOETAL DISTRESS SYNDROME [None]
  - HYPERSENSITIVITY [None]
  - HYPOTONIA [None]
  - HYPOTONIA NEONATAL [None]
  - MIOSIS [None]
  - MOTOR DYSFUNCTION [None]
  - NEONATAL DISORDER [None]
  - NEONATAL RESPIRATORY ACIDOSIS [None]
  - REFLEXES ABNORMAL [None]
